FAERS Safety Report 7729071-1 (Version None)
Quarter: 2011Q3

REPORT INFORMATION
  Report Type: 
  Country: None (occurrence: None)
  Receive Date: 20110831
  Receipt Date: 20110831
  Transmission Date: 20111222
  Serious: Yes (Hospitalization, Disabling, Other)
  Sender: FDA-Public Use
  Company Number: None

PATIENT
  Sex: Female
  Weight: 72.5755 kg

DRUGS (1)
  1. RECLAST [Suspect]
     Indication: OSTEOPOROSIS
     Dosage: 5 MG 5MG IV Q HEAL IV
     Route: 042
     Dates: start: 20091211

REACTIONS (12)
  - IMPAIRED HEALING [None]
  - ARTHRALGIA [None]
  - FALL [None]
  - FUNGAL INFECTION [None]
  - ALOPECIA [None]
  - GINGIVAL DISORDER [None]
  - TOOTH DISORDER [None]
  - ARTHROPATHY [None]
  - MOUTH ULCERATION [None]
  - SCAR [None]
  - BONE PAIN [None]
  - PAIN [None]
